FAERS Safety Report 4349049-8 (Version None)
Quarter: 2004Q2

REPORT INFORMATION
  Report Type: 
  Country: None (occurrence: None)
  Receive Date: 20040422
  Receipt Date: 20040412
  Transmission Date: 20050107
  Serious: No
  Sender: FDA-Public Use
  Company Number: CAR-10129

PATIENT
  Age: 37 Year
  Sex: Female

DRUGS (1)
  1. CARTICEL [Suspect]
     Indication: ARTHROPATHY
     Dosage: 1 NA ONCE IS
     Dates: start: 20020226, end: 20020226

REACTIONS (3)
  - FAILURE OF IMPLANT [None]
  - GRAFT COMPLICATION [None]
  - LOOSE BODY IN JOINT [None]
